FAERS Safety Report 10550973 (Version 2)
Quarter: 2015Q1

REPORT INFORMATION
  Report Type: Spontaneous
  Country: US (occurrence: None)
  Receive Date: 20141020
  Receipt Date: 20150120
  Transmission Date: 20150720
  Serious: Yes (Other)
  Sender: FDA-Public Use
  Company Number: AEGR000600

PATIENT
  Age: 69 Year
  Sex: Male
  Weight: 86.2 kg

DRUGS (6)
  1. HYDROCHLOROTHIAZIDE (HYDROCHLOROTHIAZIDE) [Concomitant]
     Active Substance: HYDROCHLOROTHIAZIDE
  2. LISINOPRIL. [Concomitant]
     Active Substance: LISINOPRIL
  3. METFORMIN [Concomitant]
     Active Substance: METFORMIN HYDROCHLORIDE
  4. VITAMIN E (TOCOPHERYL ACETATE) [Concomitant]
  5. OMEGA 3 (FISH OIL) [Concomitant]
     Active Substance: OMEGA-3 FATTY ACIDS
  6. JUXTAPID [Suspect]
     Active Substance: LOMITAPIDE MESYLATE
     Indication: TYPE IIA HYPERLIPIDAEMIA
     Route: 048
     Dates: start: 20140705, end: 2014

REACTIONS (5)
  - Diarrhoea [None]
  - Nausea [None]
  - Liver function test abnormal [None]
  - Weight decreased [None]
  - Arthralgia [None]

NARRATIVE: CASE EVENT DATE: 2014
